FAERS Safety Report 5269384-9 (Version None)
Quarter: 2007Q1

REPORT INFORMATION
  Report Type: 
  Country: None (occurrence: None)
  Receive Date: 20070319
  Receipt Date: 20070116
  Transmission Date: 20070707
  Serious: Yes (Other)
  Sender: FDA-Public Use
  Company Number: US-PFIZER INC-2007019878

PATIENT
  Sex: Male

DRUGS (2)
  1. GENOTROPIN [Suspect]
  2. TESTOSTERONE [Concomitant]
     Indication: HYPOGONADISM

REACTIONS (4)
  - BILE DUCT OBSTRUCTION [None]
  - CHOLECYSTITIS [None]
  - PANCREATITIS ACUTE [None]
  - SCOLIOSIS [None]
